FAERS Safety Report 6649723-4 (Version None)
Quarter: 2010Q1

REPORT INFORMATION
  Report Type: 
  Country: None (occurrence: None)
  Receive Date: 20100324
  Receipt Date: 20100324
  Transmission Date: 20100710
  Serious: Yes (Other)
  Sender: FDA-Public Use
  Company Number: None

PATIENT
  Age: 46 Year
  Sex: Male
  Weight: 83.92 kg

DRUGS (14)
  1. CLOZAPINE [Suspect]
     Indication: SCHIZOAFFECTIVE DISORDER
     Dosage: 200 MG 8 PM PO
     Route: 048
     Dates: start: 20091201, end: 20100318
  2. CLOZAPINE [Suspect]
     Indication: SCHIZOAFFECTIVE DISORDER
     Dosage: 50 MG 8 PM PO
     Route: 048
     Dates: start: 20091201, end: 20100318
  3. ATORVOSTATIN [Concomitant]
  4. ASPIRIN [Concomitant]
  5. BENZTROPINE MESYLATE [Concomitant]
  6. CYANOCOBALAMIN INJ [Concomitant]
  7. DOCUSATE [Concomitant]
  8. HALOPERIDL [Concomitant]
  9. IPATROPIUM INHALER [Concomitant]
  10. LITHIUM [Concomitant]
  11. LORAZEPAM [Concomitant]
  12. NICOTINE [Concomitant]
  13. SCOPOLAMINE [Concomitant]
  14. SENNA [Concomitant]

REACTIONS (1)
  - LABORATORY TEST ABNORMAL [None]
